FAERS Safety Report 5884481-2 (Version None)
Quarter: 2008Q3

REPORT INFORMATION
  Report Type: 
  Country: None (occurrence: None)
  Receive Date: 20080911
  Receipt Date: 20080901
  Transmission Date: 20090109
  Serious: Yes (Other)
  Sender: FDA-Public Use
  Company Number: GXKR2008IT08299

PATIENT
  Age: 81 Year
  Sex: Female

DRUGS (10)
  1. ISONIAZID [Suspect]
     Indication: INTERVERTEBRAL DISCITIS
     Dosage: 400 MG, INTRAVENOUS
  2. ISONIAZID [Suspect]
     Indication: TUBERCULOSIS
     Dosage: 400 MG, INTRAVENOUS
  3. LINEZOLID [Suspect]
     Indication: INTERVERTEBRAL DISCITIS
     Dosage: 600 MG, BID, INTRAVENOUS
     Route: 042
  4. LINEZOLID [Suspect]
     Indication: TUBERCULOSIS
     Dosage: 600 MG, BID, INTRAVENOUS
     Route: 042
  5. RIFAMPICIN [Concomitant]
  6. ETHAMBUTOL HYDROCHLORIDE [Concomitant]
  7. RANITIDINE [Concomitant]
  8. METOCLOPRAMIDE [Concomitant]
  9. PYRAZINAMIDE [Concomitant]
  10. LEVOFLOXACIN [Concomitant]

REACTIONS (3)
  - LACTIC ACIDOSIS [None]
  - NORMOCHROMIC NORMOCYTIC ANAEMIA [None]
  - OESOPHAGITIS [None]
